FAERS Safety Report 4274083-6 (Version None)
Quarter: 2004Q1

REPORT INFORMATION
  Report Type: 
  Country: None (occurrence: None)
  Receive Date: 20040120
  Receipt Date: 20031104
  Transmission Date: 20041129
  Serious: Yes (Hospitalization)
  Sender: FDA-Public Use
  Company Number: FR-GLAXOSMITHKLINE-A0433161A

PATIENT
  Age: 57 Year
  Sex: Female

DRUGS (3)
  1. NAVELBINE [Suspect]
     Indication: BREAST CANCER
     Dosage: 30MGM2 PER DAY
     Route: 042
     Dates: start: 20030710, end: 20030910
  2. LEDERTREXATE [Suspect]
     Indication: ILL-DEFINED DISORDER
     Dosage: 15MG SEE DOSAGE TEXT
     Route: 037
     Dates: start: 20030721, end: 20030910
  3. DEPO-MEDROL [Concomitant]
     Route: 065
     Dates: start: 20030721, end: 20030910

REACTIONS (15)
  - ALVEOLITIS [None]
  - C-REACTIVE PROTEIN INCREASED [None]
  - CHEST X-RAY ABNORMAL [None]
  - COUGH [None]
  - CREPITATIONS [None]
  - DRUG TOXICITY [None]
  - DYSPNOEA [None]
  - FATIGUE [None]
  - HYPOXIA [None]
  - INFLAMMATION [None]
  - INTERSTITIAL LUNG DISEASE [None]
  - PNEUMONITIS [None]
  - PULMONARY FIBROSIS [None]
  - PYREXIA [None]
  - RALES [None]
